FAERS Safety Report 6045357-3 (Version None)
Quarter: 2009Q1

REPORT INFORMATION
  Report Type: 
  Country: None (occurrence: None)
  Receive Date: 20090121
  Receipt Date: 20090114
  Transmission Date: 20090719
  Serious: Yes (Other)
  Sender: FDA-Public Use
  Company Number: US-JNJFOC-20090103389

PATIENT
  Age: 71 Year
  Sex: Male
  Weight: 68.95 kg

DRUGS (2)
  1. EXTRA STRENGTH TYLENOL [Suspect]
     Route: 048
  2. EXTRA STRENGTH TYLENOL [Suspect]
     Indication: BACK PAIN
     Dosage: 1000-2000 MG DAILY
     Route: 048

REACTIONS (1)
  - DIZZINESS POSTURAL [None]
